FAERS Safety Report 5420938-6 (Version None)
Quarter: 2007Q3

REPORT INFORMATION
  Report Type: 
  Country: None (occurrence: None)
  Receive Date: 20070817
  Receipt Date: 20070817
  Transmission Date: 20080115
  Serious: Yes (Disabling)
  Sender: FDA-Public Use
  Company Number: None

PATIENT
  Sex: Female
  Weight: 77.1115 kg

DRUGS (1)
  1. LIPITOR [Suspect]
     Indication: BLOOD CHOLESTEROL INCREASED
     Dosage: 10MG ONCE A DAY PO
     Route: 048
     Dates: start: 19990101, end: 20070815

REACTIONS (7)
  - ARTHRALGIA [None]
  - CHEST PAIN [None]
  - FALL [None]
  - INFLUENZA LIKE ILLNESS [None]
  - JOINT INJURY [None]
  - OEDEMA PERIPHERAL [None]
  - PAIN IN EXTREMITY [None]
